FAERS Safety Report 13833869 (Version 1)
Quarter: 2017Q3

REPORT INFORMATION
  Report Type: Other
  Country: JP (occurrence: JP)
  Receive Date: 20170804
  Receipt Date: 20170804
  Transmission Date: 20171127
  Serious: Yes (Other)
  Sender: FDA-Public Use
  Company Number: JP--2017-JP-000014

PATIENT
  Age: 76 Year
  Sex: Male

DRUGS (2)
  1. METRONIDAZOLE BRAND UNSPECIFIED (VIVIMED) [Suspect]
     Active Substance: METRONIDAZOLE
     Indication: GANGRENE
     Route: 048
  2. CIPROFLOXACIN. [Concomitant]
     Active Substance: CIPROFLOXACIN
     Indication: GANGRENE

REACTIONS (2)
  - Vitamin B1 deficiency [Unknown]
  - Toxic encephalopathy [Unknown]
